FAERS Safety Report 10061931 (Version 1)
Quarter: 2014Q2

REPORT INFORMATION
  Report Type: Spontaneous
  Country: US (occurrence: None)
  Receive Date: 20140404
  Receipt Date: 20140404
  Transmission Date: 20141212
  Serious: Yes (Life-Threatening)
  Sender: FDA-Public Use
  Company Number: None

PATIENT
  Age: 23 Year
  Sex: Female
  Weight: 56.7 kg

DRUGS (1)
  1. AMPHETAMINE SALTS [Suspect]
     Dosage: 1, ONCE DAILY, TAKEN BY MOUTH
     Route: 048
     Dates: start: 20140317, end: 20140402

REACTIONS (6)
  - Heart rate increased [None]
  - Hypoaesthesia [None]
  - Chest pain [None]
  - Pain of skin [None]
  - Headache [None]
  - Product substitution issue [None]
